FAERS Safety Report 9935619 (Version 1)
Quarter: 2014Q1

REPORT INFORMATION
  Report Type: Spontaneous
  Country: DE (occurrence: DE)
  Receive Date: 20140228
  Receipt Date: 20140228
  Transmission Date: 20141002
  Serious: Yes (Other)
  Sender: FDA-Public Use
  Company Number: PHHY2014DE022407

PATIENT
  Sex: 0

DRUGS (1)
  1. CANDESARTAN CILEXETIL [Suspect]
     Dosage: (MATERNAL DOSE:8 MG/DAY)
     Route: 064

REACTIONS (2)
  - Premature baby [Unknown]
  - Foetal exposure during pregnancy [Unknown]
